FAERS Safety Report 10696470 (Version 2)
Quarter: 2015Q1

REPORT INFORMATION
  Report Type: Spontaneous
  Country: US (occurrence: US)
  Receive Date: 20150107
  Receipt Date: 20150107
  Transmission Date: 20150721
  Serious: No
  Sender: FDA-Public Use
  Company Number: US-GLAXOSMITHKLINE-A1082162A

PATIENT

DRUGS (12)
  1. LOVAZA [Suspect]
     Active Substance: OMEGA-3-ACID ETHYL ESTERS
     Indication: PRODUCT USED FOR UNKNOWN INDICATION
     Route: 048
     Dates: start: 2010, end: 20140717
  2. LIVALO [Concomitant]
     Active Substance: PITAVASTATIN CALCIUM
  3. CHONDROITIN SULFATE (BOVINE)\GLUCOSAMINE SULFATE [Concomitant]
     Active Substance: CHONDROITIN SULFATE (BOVINE)\GLUCOSAMINE SULFATE
  4. COQ10 [Concomitant]
     Active Substance: UBIDECARENONE
  5. MULTAQ [Concomitant]
     Active Substance: DRONEDARONE
  6. TOPROL XL [Concomitant]
     Active Substance: METOPROLOL SUCCINATE
  7. COUMADIN [Concomitant]
     Active Substance: WARFARIN SODIUM
  8. CALCIUM [Concomitant]
     Active Substance: CALCIUM
  9. BIOTIN [Concomitant]
     Active Substance: BIOTIN
  10. VITAMIN C [Concomitant]
     Active Substance: ASCORBIC ACID
  11. CRANBERRY EXTRACT [Concomitant]
  12. OCUVITE [Concomitant]
     Active Substance: VITAMINS

REACTIONS (3)
  - Nausea [Recovering/Resolving]
  - Product quality issue [Unknown]
  - Vomiting [Unknown]

NARRATIVE: CASE EVENT DATE: 20140713
